FAERS Safety Report 19016110 (Version 1)
Quarter: 2021Q1

REPORT INFORMATION
  Report Type: Report from Study
  Country: GB (occurrence: GB)
  Receive Date: 20210316
  Receipt Date: 20210316
  Transmission Date: 20210420
  Serious: Yes (Death, Hospitalization)
  Sender: FDA-Public Use
  Company Number: GB-BAYER-2021-102348

PATIENT
  Age: 67 Year
  Sex: Male
  Weight: 65 kg

DRUGS (5)
  1. RED BLOOD CELLS [Concomitant]
     Active Substance: HUMAN RED BLOOD CELL
     Indication: TRANSFUSION
     Dosage: 600 MILLILITRE TOTAL INTRA? AND POST?OPERATIVELY (UP TO 48 HOURS)
     Route: 065
     Dates: start: 20190404
  2. HEPARIN [Concomitant]
     Active Substance: HEPARIN SODIUM
     Indication: ANTICOAGULANT THERAPY
     Dosage: 55 KILO?INTERNATIONAL UNIT TOTAL DURIG SURGERY
     Route: 065
     Dates: start: 20190404, end: 20190404
  3. TRASYLOL [Suspect]
     Active Substance: APROTININ
     Indication: TRICUSPID VALVE REPLACEMENT
     Dosage: 400 MILLILITRE TOTAL LOADING DOSE 2 MILLION KIU PUMP PRIMING DOSE 2 MILLION KIUTOTAL CONTINUOUS INFU
     Route: 065
     Dates: start: 20190404, end: 20190404
  4. FRESH FROZEN PLASMA [Concomitant]
     Active Substance: HUMAN PLASMA
     Indication: TRANSFUSION
     Dosage: 900 MILLILITRE TOTAL INTRA AND POST?OPERATIVELY (UPTO 48 HOURS)
     Route: 065
  5. PLATELETS [Concomitant]
     Active Substance: HUMAN PLATELET, ALLOGENIC
     Indication: TRANSFUSION
     Dosage: 237 MILLILITRE TOTAL 237
     Route: 065
     Dates: start: 20190404

REACTIONS (3)
  - Renal impairment [Recovered/Resolved]
  - Product use in unapproved indication [Unknown]
  - Off label use [None]

NARRATIVE: CASE EVENT DATE: 20190404
